FAERS Safety Report 10013970 (Version 2)
Quarter: 2014Q1

REPORT INFORMATION
  Report Type: Spontaneous
  Country: FR (occurrence: FR)
  Receive Date: 20140316
  Receipt Date: 20140319
  Transmission Date: 20141002
  Serious: Yes (Hospitalization)
  Sender: FDA-Public Use
  Company Number: FR-JNJFOC-20140306611

PATIENT
  Age: 84 Year
  Sex: Male

DRUGS (9)
  1. XARELTO [Suspect]
     Indication: CEREBROVASCULAR ACCIDENT PROPHYLAXIS
     Route: 048
     Dates: start: 20140210, end: 20140221
  2. XARELTO [Suspect]
     Indication: ATRIAL FIBRILLATION
     Route: 048
     Dates: start: 20140210, end: 20140221
  3. KARDEGIC [Suspect]
     Indication: PRODUCT USED FOR UNKNOWN INDICATION
     Route: 048
     Dates: start: 20140212, end: 20140221
  4. ATENOLOL [Concomitant]
     Route: 065
  5. INEXIUM [Concomitant]
     Route: 065
  6. LASILIX [Concomitant]
     Route: 065
  7. METFORMINE [Concomitant]
     Route: 065
  8. CORDARONE [Concomitant]
     Route: 065
  9. ALDACTONE [Concomitant]
     Route: 065

REACTIONS (3)
  - Anaemia [Recovered/Resolved]
  - Asthenia [Recovered/Resolved]
  - Dyspnoea exertional [Recovered/Resolved]
